FAERS Safety Report 7937287-4 (Version None)
Quarter: 2011Q4

REPORT INFORMATION
  Report Type: 
  Country: None (occurrence: None)
  Receive Date: 20111123
  Receipt Date: 20111122
  Transmission Date: 20120403
  Serious: Yes (Death, Hospitalization)
  Sender: FDA-Public Use
  Company Number: AR-PFIZER INC-2011252897

PATIENT
  Age: 71 Year
  Sex: Male

DRUGS (2)
  1. PRISTIQ [Suspect]
     Indication: DEPRESSION
     Dosage: 50 MG, 1X/DAY
     Route: 048
     Dates: start: 20111011
  2. CLONAZEPAM [Concomitant]

REACTIONS (2)
  - HEPATIC FAILURE [None]
  - RENAL FAILURE [None]
